FAERS Safety Report 20107199 (Version 1)
Quarter: 2021Q4

REPORT INFORMATION
  Report Type: Spontaneous
  Country: US (occurrence: None)
  Receive Date: 20211123
  Receipt Date: 20211123
  Transmission Date: 20220304
  Serious: No
  Sender: FDA-Public Use
  Company Number: None

PATIENT

DRUGS (1)
  1. RECOTHROM [Suspect]
     Active Substance: THROMBIN ALFA
     Route: 061

REACTIONS (2)
  - Product packaging issue [None]
  - Incorrect route of product administration [None]
